FAERS Safety Report 6621926-4 (Version None)
Quarter: 2010Q1

REPORT INFORMATION
  Report Type: 
  Country: None (occurrence: None)
  Receive Date: 20100223
  Receipt Date: 20091229
  Transmission Date: 20100710
  Serious: No
  Sender: FDA-Public Use
  Company Number: 003793

PATIENT
  Sex: Female
  Weight: 107.5 kg

DRUGS (6)
  1. CIMZIA [Suspect]
     Indication: CROHN'S DISEASE
     Dosage: 400 MG 1X/MONTH, 400 MG SUBCUTANEOUS
     Route: 058
     Dates: start: 20081201
  2. ESTRADIOL [Concomitant]
  3. OMEPRAZOLE [Concomitant]
  4. CENTRUM [Concomitant]
  5. LOVAZA [Concomitant]
  6. CITALOPRAM HYDROBROMIDE [Concomitant]

REACTIONS (5)
  - ARTHRALGIA [None]
  - BONE DENSITY DECREASED [None]
  - EYE PAIN [None]
  - VISION BLURRED [None]
  - VISUAL ACUITY REDUCED [None]
